FAERS Safety Report 8299164-1 (Version None)
Quarter: 2012Q2

REPORT INFORMATION
  Report Type: 
  Country: None (occurrence: None)
  Receive Date: 20120419
  Receipt Date: 20120409
  Transmission Date: 20120825
  Serious: Yes (Death, Hospitalization)
  Sender: FDA-Public Use
  Company Number: US-ACTELION-A-NJ2012-64035

PATIENT

DRUGS (5)
  1. NITROGLYCERIN [Concomitant]
  2. LOVENOX [Interacting]
  3. TRACLEER [Suspect]
     Indication: PULMONARY ARTERIAL HYPERTENSION
     Dosage: UNK
     Route: 048
     Dates: start: 20080616
  4. IMDUR [Concomitant]
  5. WARFARIN SODIUM [Interacting]

REACTIONS (2)
  - RENAL EMBOLISM [None]
  - PERITONEAL HAEMORRHAGE [None]
